FAERS Safety Report 8556037-4 (Version None)
Quarter: 2012Q3

REPORT INFORMATION
  Report Type: 
  Country: None (occurrence: None)
  Receive Date: 20120801
  Receipt Date: 20101217
  Transmission Date: 20120928
  Serious: Yes (Hospitalization, Other)
  Sender: FDA-Public Use
  Company Number: US-BAYER-201032524NA

PATIENT
  Age: 46 Year
  Sex: Female
  Weight: 147.85 kg

DRUGS (12)
  1. PROZAC [Concomitant]
  2. ADVAIR DISKUS 100/50 [Concomitant]
     Dosage: UNK UNK, PRN
  3. YASMIN [Suspect]
     Indication: ORAL CONTRACEPTION
     Dosage: TABLETS 28'S
     Route: 048
     Dates: start: 20030410, end: 20050905
  4. YAZ [Suspect]
     Indication: ORAL CONTRACEPTION
  5. PAXIL [Concomitant]
  6. PROVENTIL [Concomitant]
     Dosage: UNK UNK, PRN
  7. ALLEGRA [Concomitant]
  8. ALLEGRA-D 12 HOUR [Concomitant]
     Dosage: UNK UNK, BID
  9. BISMUTH SUBSALICYLATE [Concomitant]
  10. ALIMENTARY TRACT AND METABOLISM [Concomitant]
  11. GLUCOPHAGE [Concomitant]
     Dosage: 500 MG, OM
  12. DARVOCET [Concomitant]

REACTIONS (8)
  - PAIN [None]
  - NAUSEA [None]
  - CHOLECYSTITIS CHRONIC [None]
  - ABDOMINAL PAIN UPPER [None]
  - VOMITING [None]
  - HEPATIC STEATOSIS [None]
  - CHOLELITHIASIS [None]
  - BILIARY COLIC [None]
